FAERS Safety Report 13724481 (Version 1)
Quarter: 2017Q3

REPORT INFORMATION
  Report Type: Spontaneous
  Country: BR (occurrence: BR)
  Receive Date: 20170706
  Receipt Date: 20170706
  Transmission Date: 20171127
  Serious: Yes (Other)
  Sender: FDA-Public Use
  Company Number: BR-PFIZER INC-2017285118

PATIENT
  Sex: Female

DRUGS (1)
  1. CELEBRA [Suspect]
     Active Substance: CELECOXIB
     Indication: ARTHRITIS
     Dosage: UNK

REACTIONS (14)
  - Arrhythmia [Unknown]
  - Pollakiuria [Unknown]
  - Erythema [Unknown]
  - Chest pain [Unknown]
  - Toxicity to various agents [Unknown]
  - Dyspnoea [Unknown]
  - Insomnia [Unknown]
  - Feeling abnormal [Unknown]
  - Blood pressure increased [Unknown]
  - Eye irritation [Unknown]
  - Angina pectoris [Unknown]
  - Rash macular [Unknown]
  - Pruritus [Unknown]
  - Head discomfort [Unknown]
